FAERS Safety Report 8580254-0 (Version None)
Quarter: 2012Q3

REPORT INFORMATION
  Report Type: 
  Country: None (occurrence: None)
  Receive Date: 20120808
  Receipt Date: 20120803
  Transmission Date: 20120928
  Serious: Yes (Hospitalization, Other)
  Sender: FDA-Public Use
  Company Number: GXKR2012DE002511

PATIENT

DRUGS (1)
  1. ASPIRIN [Suspect]
     Indication: HEADACHE

REACTIONS (1)
  - BRAIN CONTUSION [None]
